FAERS Safety Report 22068929 (Version 2)
Quarter: 2023Q2

REPORT INFORMATION
  Report Type: Spontaneous
  Country: US (occurrence: US)
  Receive Date: 20230307
  Receipt Date: 20230412
  Transmission Date: 20230721
  Serious: Yes (Hospitalization)
  Sender: FDA-Public Use
  Company Number: US-AMNEAL PHARMACEUTICALS-2022-AMRX-03347

PATIENT
  Age: 81 Year
  Sex: Male
  Weight: 56.689 kg

DRUGS (4)
  1. RYTARY [Suspect]
     Active Substance: CARBIDOPA\LEVODOPA
     Indication: Product used for unknown indication
     Dosage: 23.75/95 MG, 3 CAPSULES, 3 /DAY
     Route: 048
  2. RYTARY [Suspect]
     Active Substance: CARBIDOPA\LEVODOPA
     Dosage: 23.75/95 MG TAKE 1 CAPSULE BY MOUTH 4 TIMES A DAY (BEFORE MEALS AND NIGHTLY)
     Route: 048
     Dates: start: 20221212
  3. RYTARY [Suspect]
     Active Substance: CARBIDOPA\LEVODOPA
     Dosage: 2 CAPSULES, 4 /DAY BEFORE MEALS AND NIGHTLY
     Route: 048
     Dates: start: 20230104
  4. DESMOPRESSIN [Suspect]
     Active Substance: DESMOPRESSIN
     Indication: Diuretic therapy
     Dosage: UNK
     Route: 065

REACTIONS (4)
  - Blood sodium decreased [Unknown]
  - Asthenia [Unknown]
  - Slow response to stimuli [Unknown]
  - Product dose omission issue [Unknown]

NARRATIVE: CASE EVENT DATE: 20220926
